FAERS Safety Report 19172773 (Version 7)
Quarter: 2022Q4

REPORT INFORMATION
  Report Type: Report from Study
  Country: JP (occurrence: JP)
  Receive Date: 20210423
  Receipt Date: 20221116
  Transmission Date: 20230113
  Serious: Yes (Hospitalization, Other)
  Sender: FDA-Public Use
  Company Number: JP-CHUGAI-A2020056285ROCHE

PATIENT
  Age: 49 Year
  Sex: Male
  Weight: 75.7 kg

DRUGS (36)
  1. BEVACIZUMAB [Suspect]
     Active Substance: BEVACIZUMAB
     Indication: Rectal adenocarcinoma
     Dosage: DAY1
     Route: 041
     Dates: start: 20201202, end: 20201202
  2. BEVACIZUMAB [Suspect]
     Active Substance: BEVACIZUMAB
     Dosage: DAY1
     Route: 041
     Dates: start: 20210106, end: 20210310
  3. BEVACIZUMAB [Suspect]
     Active Substance: BEVACIZUMAB
     Dosage: DAY1
     Route: 041
     Dates: start: 20210407, end: 20210407
  4. BEVACIZUMAB [Suspect]
     Active Substance: BEVACIZUMAB
     Route: 041
     Dates: start: 20210428, end: 20211013
  5. BEVACIZUMAB [Suspect]
     Active Substance: BEVACIZUMAB
     Route: 041
     Dates: start: 20211110, end: 20220112
  6. BEVACIZUMAB [Suspect]
     Active Substance: BEVACIZUMAB
     Route: 041
     Dates: start: 20220209, end: 20220413
  7. BEVACIZUMAB [Suspect]
     Active Substance: BEVACIZUMAB
     Dosage: MOST RECENT DOSE : 14/SEP/2022
     Route: 041
     Dates: start: 20220511
  8. CAPECITABINE [Suspect]
     Active Substance: CAPECITABINE
     Indication: Rectal adenocarcinoma
     Dosage: DAY1-15
     Route: 048
     Dates: start: 20201202, end: 20201216
  9. CAPECITABINE [Suspect]
     Active Substance: CAPECITABINE
     Dosage: DAY1-15
     Route: 048
     Dates: start: 20210106, end: 20210324
  10. CAPECITABINE [Suspect]
     Active Substance: CAPECITABINE
     Dosage: DAY1-15
     Route: 048
     Dates: start: 20210407, end: 20211027
  11. CAPECITABINE [Suspect]
     Active Substance: CAPECITABINE
     Dosage: DAY1-15
     Route: 048
     Dates: start: 20211110, end: 20220105
  12. CAPECITABINE [Suspect]
     Active Substance: CAPECITABINE
     Dosage: DAY1-15
     Route: 048
     Dates: start: 20220112
  13. CAPECITABINE [Suspect]
     Active Substance: CAPECITABINE
     Dosage: DAY1-15
     Route: 048
     Dates: start: 20220209, end: 20220427
  14. CAPECITABINE [Suspect]
     Active Substance: CAPECITABINE
     Dosage: DAY1-15?MOST RECENT DOSE : 28/SEP/2022
     Route: 048
     Dates: start: 20220511
  15. OXALIPLATIN [Concomitant]
     Active Substance: OXALIPLATIN
     Indication: Rectal adenocarcinoma
     Dosage: DAY1
     Route: 041
     Dates: start: 20201202, end: 20201202
  16. OXALIPLATIN [Concomitant]
     Active Substance: OXALIPLATIN
     Dosage: DAY1
     Route: 041
     Dates: start: 20210106, end: 20210310
  17. OXALIPLATIN [Concomitant]
     Active Substance: OXALIPLATIN
     Dosage: DAY1
     Route: 041
     Dates: start: 20210407, end: 20210407
  18. IRINOTECAN HYDROCHLORIDE [Concomitant]
     Active Substance: IRINOTECAN HYDROCHLORIDE
     Indication: Rectal adenocarcinoma
     Dosage: DAY1
     Route: 041
     Dates: start: 20201202, end: 20201202
  19. IRINOTECAN HYDROCHLORIDE [Concomitant]
     Active Substance: IRINOTECAN HYDROCHLORIDE
     Dosage: DAY1
     Route: 041
     Dates: start: 20210106, end: 20210310
  20. IRINOTECAN HYDROCHLORIDE [Concomitant]
     Active Substance: IRINOTECAN HYDROCHLORIDE
     Dosage: DAY1
     Route: 041
     Dates: start: 20210407, end: 20210407
  21. PALONOSETRON HYDROCHLORIDE [Concomitant]
     Active Substance: PALONOSETRON HYDROCHLORIDE
     Dosage: DAY1
     Route: 042
     Dates: start: 20201202, end: 20201202
  22. PALONOSETRON HYDROCHLORIDE [Concomitant]
     Active Substance: PALONOSETRON HYDROCHLORIDE
     Dosage: DAY1
     Route: 042
     Dates: start: 20210106, end: 20210310
  23. PALONOSETRON HYDROCHLORIDE [Concomitant]
     Active Substance: PALONOSETRON HYDROCHLORIDE
     Dosage: DAY1
     Route: 042
     Dates: start: 20210407, end: 20210407
  24. DEXAMETHASONE SODIUM PHOSPHATE [Concomitant]
     Active Substance: DEXAMETHASONE SODIUM PHOSPHATE
     Dosage: DAY1
     Route: 042
     Dates: start: 20201202, end: 20201202
  25. DEXAMETHASONE SODIUM PHOSPHATE [Concomitant]
     Active Substance: DEXAMETHASONE SODIUM PHOSPHATE
     Dosage: DAY1
     Route: 042
     Dates: start: 20210106, end: 20210310
  26. DEXAMETHASONE SODIUM PHOSPHATE [Concomitant]
     Active Substance: DEXAMETHASONE SODIUM PHOSPHATE
     Dosage: DAY1
     Route: 042
     Dates: start: 20210407, end: 20210407
  27. DEXAMETHASONE [Concomitant]
     Active Substance: DEXAMETHASONE
     Dosage: DAY2-4
     Route: 048
     Dates: start: 20201203, end: 20201205
  28. DEXAMETHASONE [Concomitant]
     Active Substance: DEXAMETHASONE
     Dosage: DAY2-4
     Route: 048
     Dates: start: 20210107, end: 20210313
  29. DEXAMETHASONE [Concomitant]
     Active Substance: DEXAMETHASONE
     Dosage: DAY2-4
     Route: 048
     Dates: start: 20210408, end: 20210410
  30. APREPITANT [Concomitant]
     Active Substance: APREPITANT
     Dosage: DAY1
     Route: 048
     Dates: start: 20201202, end: 20201202
  31. APREPITANT [Concomitant]
     Active Substance: APREPITANT
     Dosage: DAY2-3
     Route: 048
     Dates: start: 20201203, end: 20201204
  32. APREPITANT [Concomitant]
     Active Substance: APREPITANT
     Dosage: DAY1
     Route: 048
     Dates: start: 20210106, end: 20210310
  33. APREPITANT [Concomitant]
     Active Substance: APREPITANT
     Dosage: DAY2-3
     Route: 048
     Dates: start: 20210107, end: 20210312
  34. APREPITANT [Concomitant]
     Active Substance: APREPITANT
     Dosage: DAY1
     Route: 048
     Dates: start: 20210407, end: 20210407
  35. APREPITANT [Concomitant]
     Active Substance: APREPITANT
     Dosage: DAY2-3
     Route: 048
     Dates: start: 20210408, end: 20210410
  36. LOPERAMIDE HYDROCHLORIDE [Concomitant]
     Active Substance: LOPERAMIDE HYDROCHLORIDE
     Dosage: DOSAGE IS UNCERTAIN.
     Route: 065

REACTIONS (3)
  - Embolism venous [Recovered/Resolved]
  - Hypertension [Recovered/Resolved]
  - COVID-19 [Recovered/Resolved]

NARRATIVE: CASE EVENT DATE: 20210127
